FAERS Safety Report 5096982-8 (Version None)
Quarter: 2006Q3

REPORT INFORMATION
  Report Type: 
  Country: None (occurrence: None)
  Receive Date: 20060831
  Receipt Date: 20060831
  Transmission Date: 20061208
  Serious: Yes (Life-Threatening, Hospitalization)
  Sender: FDA-Public Use
  Company Number: None

PATIENT
  Age: 13 Year
  Weight: 63.5036 kg

DRUGS (2)
  1. LEXAPRO [Suspect]
     Indication: DEPRESSION
     Dosage: 20MG   ONCE A DAY   PO
     Route: 048
     Dates: start: 20050305, end: 20050326
  2. ZOLOFT [Suspect]
     Indication: DEPRESSION
     Dosage: 100MG   ONCE A DAY   PO
     Route: 048
     Dates: start: 20050326, end: 20050805

REACTIONS (10)
  - ABNORMAL BEHAVIOUR [None]
  - AGITATION [None]
  - ANXIETY [None]
  - HALLUCINATION [None]
  - ILL-DEFINED DISORDER [None]
  - MANIA [None]
  - NERVOUSNESS [None]
  - RESTLESSNESS [None]
  - SUICIDE ATTEMPT [None]
  - THINKING ABNORMAL [None]
